FAERS Safety Report 10608200 (Version 23)
Quarter: 2020Q1

REPORT INFORMATION
  Report Type: Report from Study
  Country: US (occurrence: US)
  Receive Date: 20141125
  Receipt Date: 20200212
  Transmission Date: 20200409
  Serious: Yes (Hospitalization, Disabling, Other)
  Sender: FDA-Public Use
  Company Number: US-SA-2014SA135421

PATIENT
  Age: 55 Year
  Sex: Female
  Weight: 82.09 kg

DRUGS (9)
  1. TERIFLUNOMIDE. [Suspect]
     Active Substance: TERIFLUNOMIDE
     Dosage: 14 MG,QD
     Route: 048
     Dates: start: 20131101, end: 20140920
  2. TERIFLUNOMIDE. [Suspect]
     Active Substance: TERIFLUNOMIDE
     Dosage: 7 MG,QD
     Route: 048
     Dates: start: 20131001
  3. CORTICOTROPIN [Concomitant]
     Active Substance: CORTICOTROPIN
     Dosage: UNK
  4. SOLU-MEDROL [Concomitant]
     Active Substance: METHYLPREDNISOLONE SODIUM SUCCINATE
     Dosage: 1000 MG,QD
  5. TERIFLUNOMIDE. [Suspect]
     Active Substance: TERIFLUNOMIDE
     Indication: MULTIPLE SCLEROSIS
     Dosage: 14 MG,QD
     Route: 048
     Dates: start: 20120101
  6. TERIFLUNOMIDE. [Suspect]
     Active Substance: TERIFLUNOMIDE
     Dosage: 14 MG,QD
     Route: 048
     Dates: start: 20141001, end: 20150101
  7. PEPTO-BISMOL [Concomitant]
     Active Substance: BISMUTH SUBSALICYLATE
     Dosage: UNK UNK,PRN
  8. ADDERALL [Concomitant]
     Active Substance: AMPHETAMINE ASPARTATE\AMPHETAMINE SULFATE\DEXTROAMPHETAMINE SACCHARATE\DEXTROAMPHETAMINE SULFATE
  9. TERIFLUNOMIDE. [Suspect]
     Active Substance: TERIFLUNOMIDE
     Dosage: UNK
     Route: 048
     Dates: end: 201901

REACTIONS (27)
  - Ankle fracture [Unknown]
  - Pain [Not Recovered/Not Resolved]
  - Blood cholesterol abnormal [Not Recovered/Not Resolved]
  - Hypertension [Unknown]
  - Burning sensation [Unknown]
  - Chromaturia [Unknown]
  - Faeces discoloured [Unknown]
  - Alopecia [Recovered/Resolved]
  - Walking aid user [Unknown]
  - Weight increased [Unknown]
  - Reading disorder [Unknown]
  - Feeling abnormal [Not Recovered/Not Resolved]
  - Blood cholesterol increased [Unknown]
  - Central nervous system lesion [Not Recovered/Not Resolved]
  - Cognitive disorder [Unknown]
  - Hospitalisation [Unknown]
  - Confusional state [Unknown]
  - Diarrhoea [Unknown]
  - Thinking abnormal [Not Recovered/Not Resolved]
  - Neuropathy peripheral [Unknown]
  - Allergy to arthropod sting [Recovered/Resolved]
  - Arthropod bite [Recovered/Resolved]
  - Fall [Not Recovered/Not Resolved]
  - Alopecia [Recovered/Resolved]
  - Unevaluable event [Recovered/Resolved]
  - Peripheral swelling [Recovered/Resolved]
  - Memory impairment [Unknown]

NARRATIVE: CASE EVENT DATE: 2012
